FAERS Safety Report 25006389 (Version 2)
Quarter: 2025Q1

REPORT INFORMATION
  Report Type: Spontaneous
  Country: CA (occurrence: CA)
  Receive Date: 20250224
  Receipt Date: 20250302
  Transmission Date: 20250408
  Serious: Yes (Life-Threatening, Hospitalization, Other)
  Sender: Haleon PLC
  Company Number: CA-002147023-NVSC2024CA009955

PATIENT
  Sex: Male

DRUGS (54)
  1. VOLTAREN [Suspect]
     Active Substance: DICLOFENAC SODIUM
     Indication: Pain
     Route: 065
  2. VOLTAREN [Suspect]
     Active Substance: DICLOFENAC SODIUM
     Indication: Neuralgia
     Route: 065
  3. VOLTAREN [Suspect]
     Active Substance: DICLOFENAC SODIUM
     Indication: Guillain-Barre syndrome
     Route: 065
  4. DICLOFENAC [Suspect]
     Active Substance: DICLOFENAC
     Indication: Pain
     Route: 065
  5. DICLOFENAC [Suspect]
     Active Substance: DICLOFENAC
     Indication: Neuralgia
  6. GABAPENTIN [Suspect]
     Active Substance: GABAPENTIN
     Indication: Neuralgia
     Dosage: 900 MG, QD
     Route: 065
  7. GABAPENTIN [Suspect]
     Active Substance: GABAPENTIN
     Indication: Guillain-Barre syndrome
     Dosage: 1800 MG, QD
     Route: 048
  8. GABAPENTIN [Suspect]
     Active Substance: GABAPENTIN
     Indication: Product used for unknown indication
     Dosage: 1200 MG, QD
     Route: 048
  9. GABAPENTIN [Suspect]
     Active Substance: GABAPENTIN
     Dosage: 3600 MG, QD
     Route: 048
  10. GABAPENTIN [Suspect]
     Active Substance: GABAPENTIN
     Dosage: 3900 MG, QD
     Route: 065
  11. GABAPENTIN [Suspect]
     Active Substance: GABAPENTIN
     Dosage: 300 MG, QD
     Route: 048
  12. GABAPENTIN [Suspect]
     Active Substance: GABAPENTIN
     Dosage: 300 MG, QD; ORAL USE
     Route: 048
  13. GABAPENTIN [Suspect]
     Active Substance: GABAPENTIN
     Route: 065
  14. HYDROMORPHONE [Suspect]
     Active Substance: HYDROMORPHONE
     Indication: Neuralgia
     Route: 042
  15. HYDROMORPHONE [Suspect]
     Active Substance: HYDROMORPHONE
     Indication: Product used for unknown indication
     Route: 048
  16. HYDROMORPHONE [Suspect]
     Active Substance: HYDROMORPHONE
     Indication: Guillain-Barre syndrome
     Dosage: 7 MG, QD
     Route: 065
  17. DICLOFENAC SODIUM [Suspect]
     Active Substance: DICLOFENAC SODIUM
     Indication: Neuralgia
     Route: 065
  18. HUMAN IMMUNOGLOBULIN G [Suspect]
     Active Substance: HUMAN IMMUNOGLOBULIN G
     Indication: Guillain-Barre syndrome
     Dosage: 400 MG/KG, QD
     Route: 042
  19. VENLAFAXINE [Suspect]
     Active Substance: VENLAFAXINE HYDROCHLORIDE
     Indication: Neuralgia
     Route: 065
  20. VENLAFAXINE [Suspect]
     Active Substance: VENLAFAXINE HYDROCHLORIDE
     Indication: Guillain-Barre syndrome
     Route: 065
  21. PHENYTOIN [Suspect]
     Active Substance: PHENYTOIN
     Indication: Neuralgia
     Dosage: 1500 MG, QD
     Route: 065
  22. OLANZAPINE [Suspect]
     Active Substance: OLANZAPINE
     Indication: Neuralgia
     Dosage: 3 MG, QD
     Route: 065
  23. OLANZAPINE [Suspect]
     Active Substance: OLANZAPINE
     Indication: Guillain-Barre syndrome
     Dosage: 2.5 MG, QD
     Route: 065
  24. ZOPICLONE [Suspect]
     Active Substance: ZOPICLONE
     Indication: Neuralgia
     Route: 065
  25. ZOPICLONE [Suspect]
     Active Substance: ZOPICLONE
     Indication: Guillain-Barre syndrome
     Route: 065
  26. KETAMINE [Suspect]
     Active Substance: KETAMINE
     Indication: Neuralgia
     Dosage: 30 MG, QD
     Route: 065
  27. KETAMINE [Suspect]
     Active Substance: KETAMINE
     Indication: Guillain-Barre syndrome
     Dosage: 40 MG, QD
     Route: 065
  28. NABILONE [Suspect]
     Active Substance: NABILONE
     Indication: Neuralgia
     Dosage: 2 MG, QD
     Route: 065
  29. NABILONE [Suspect]
     Active Substance: NABILONE
     Indication: Pain
     Dosage: 6 MG, 24D (6 MG, QH)
     Route: 065
  30. NABILONE [Suspect]
     Active Substance: NABILONE
     Indication: Guillain-Barre syndrome
     Route: 042
  31. NABILONE [Suspect]
     Active Substance: NABILONE
     Route: 042
  32. FENTANYL [Suspect]
     Active Substance: FENTANYL
     Indication: Neuralgia
     Dosage: 37.5 MG, QH; UNKNOWN
     Route: 065
  33. FENTANYL [Suspect]
     Active Substance: FENTANYL
     Indication: Pain
     Dosage: 25 MG, QH; UNKNOWN
     Route: 065
  34. FENTANYL [Suspect]
     Active Substance: FENTANYL
     Indication: Guillain-Barre syndrome
     Dosage: 25 MG, QH; UNKNOWN
  35. DILAUDID [Suspect]
     Active Substance: HYDROMORPHONE HYDROCHLORIDE
     Indication: Neuralgia
     Dosage: 30 MG, QD
     Route: 065
  36. DILAUDID [Suspect]
     Active Substance: HYDROMORPHONE HYDROCHLORIDE
     Indication: Pain
     Dosage: 7 MG, QD
     Route: 065
  37. DILAUDID [Suspect]
     Active Substance: HYDROMORPHONE HYDROCHLORIDE
     Indication: Guillain-Barre syndrome
     Route: 065
  38. LIDOCAINE [Suspect]
     Active Substance: LIDOCAINE
     Indication: Pain
     Dosage: 3.84 MG,QH
     Route: 042
  39. LIDOCAINE [Suspect]
     Active Substance: LIDOCAINE
     Indication: Guillain-Barre syndrome
     Route: 065
  40. LIDOCAINE [Suspect]
     Active Substance: LIDOCAINE
     Indication: Neuralgia
     Route: 065
  41. LIDOCAINE [Suspect]
     Active Substance: LIDOCAINE
     Route: 065
  42. ADVIL [Suspect]
     Active Substance: IBUPROFEN
     Indication: Neuralgia
     Dosage: 1600 MG, QD
     Route: 065
  43. ADVIL [Suspect]
     Active Substance: IBUPROFEN
     Indication: Guillain-Barre syndrome
     Route: 065
  44. ADVIL [Suspect]
     Active Substance: IBUPROFEN
     Indication: Acute respiratory failure
     Route: 065
  45. ACETAMINOPHEN [Suspect]
     Active Substance: ACETAMINOPHEN
     Indication: Neuralgia
     Dosage: 2600 MG, QD; UNKNOWN
     Route: 065
  46. ACETAMINOPHEN [Suspect]
     Active Substance: ACETAMINOPHEN
     Indication: Pain
     Dosage: 3900 MG, QD; UNKNOWN
     Route: 065
  47. ACETAMINOPHEN [Suspect]
     Active Substance: ACETAMINOPHEN
     Indication: Guillain-Barre syndrome
     Route: 065
  48. VENLAFAXINE HYDROCHLORIDE [Suspect]
     Active Substance: VENLAFAXINE HYDROCHLORIDE
     Indication: Neuralgia
     Route: 065
  49. XYLOCAINE [Suspect]
     Active Substance: LIDOCAINE HYDROCHLORIDE
     Indication: Pain
     Dosage: 3.84 MG, QH
     Route: 042
  50. XYLOCAINE [Suspect]
     Active Substance: LIDOCAINE HYDROCHLORIDE
     Indication: Neuralgia
  51. XYLOCAINE [Suspect]
     Active Substance: LIDOCAINE HYDROCHLORIDE
     Indication: Guillain-Barre syndrome
  52. NORTRIPTYLINE [Concomitant]
     Active Substance: NORTRIPTYLINE
     Indication: Neuralgia
  53. BUPIVACAINE [Concomitant]
     Active Substance: BUPIVACAINE
     Indication: Neuralgia
  54. MORPHINE [Concomitant]
     Active Substance: MORPHINE
     Indication: Neuralgia

REACTIONS (3)
  - Inspiratory capacity decreased [Unknown]
  - Drug ineffective [Unknown]
  - Off label use [Unknown]
